FAERS Safety Report 9728247 (Version 1)
Quarter: 2013Q4

REPORT INFORMATION
  Report Type: Spontaneous
  Country: US (occurrence: None)
  Receive Date: 20131203
  Receipt Date: 20131203
  Transmission Date: 20140711
  Serious: Yes (Death)
  Sender: FDA-Public Use
  Company Number: None

PATIENT
  Sex: Female
  Weight: 68.04 kg

DRUGS (1)
  1. DILTIAZEM [Suspect]
     Indication: LOCAL SWELLING
     Dosage: 2 PILLS
     Dates: start: 20130628

REACTIONS (1)
  - Death [None]
